FAERS Safety Report 6170617-5 (Version None)
Quarter: 2009Q2

REPORT INFORMATION
  Report Type: 
  Country: None (occurrence: None)
  Receive Date: 20090428
  Receipt Date: 20090424
  Transmission Date: 20091009
  Serious: Yes (Hospitalization)
  Sender: FDA-Public Use
  Company Number: US-WYE-H09107709

PATIENT
  Sex: Male
  Weight: 80.7 kg

DRUGS (8)
  1. TEMSIROLIMUS [Suspect]
     Indication: MULTIPLE MYELOMA
     Dosage: 25 MG DAYS 1, 8, 15, 22, 29 EVERY 35
     Route: 065
     Dates: start: 20090420
  2. BACTRIM [Concomitant]
  3. BORTEZOMIB [Suspect]
     Indication: MULTIPLE MYELOMA
     Dosage: 1.6 MG/M^2 DAYS 1, 8, 15, 22 EVERY 35
     Route: 065
     Dates: start: 20090420
  4. OXYCONTIN [Concomitant]
  5. PERIDEX [Concomitant]
  6. VALTREX [Concomitant]
  7. ATIVAN [Concomitant]
  8. DIFLUCAN [Concomitant]

REACTIONS (1)
  - SEPSIS [None]
